FAERS Safety Report 25401992 (Version 1)
Quarter: 2025Q2

REPORT INFORMATION
  Report Type: Spontaneous
  Country: US (occurrence: US)
  Receive Date: 20250605
  Receipt Date: 20250605
  Transmission Date: 20250716
  Serious: No
  Sender: MYLAN
  Company Number: US-MYLANLABS-2025M1045398

PATIENT
  Age: 76 Year
  Sex: Male
  Weight: 63.5 kg

DRUGS (3)
  1. LATANOPROST [Suspect]
     Active Substance: LATANOPROST
     Indication: Glaucoma
     Dosage: 1 GTT DROPS, PM (1 DROP IN EACH EYE IN THE EVENING)
     Dates: start: 20250517
  2. LATANOPROST [Suspect]
     Active Substance: LATANOPROST
     Dosage: 1 GTT DROPS, PM (1 DROP IN EACH EYE IN THE EVENING)
  3. TIMOLOL [Suspect]
     Active Substance: TIMOLOL
     Indication: Glaucoma
     Dosage: 1 GTT DROPS, AM (1 DROP IN MY LEFT EYE IN THE MORNING)
     Dates: start: 202501

REACTIONS (1)
  - Eye irritation [Not Recovered/Not Resolved]

NARRATIVE: CASE EVENT DATE: 20250517
